FAERS Safety Report 6045341-X (Version None)
Quarter: 2009Q1

REPORT INFORMATION
  Report Type: 
  Country: None (occurrence: None)
  Receive Date: 20090121
  Receipt Date: 20090109
  Transmission Date: 20090719
  Serious: Yes (Other)
  Sender: FDA-Public Use
  Company Number: GB-AMGEN-US328059

PATIENT
  Sex: Male
  Weight: 114.6 kg

DRUGS (6)
  1. ENBREL [Suspect]
     Indication: RHEUMATOID ARTHRITIS
     Route: 058
     Dates: start: 20071101
  2. PREDNISOLONE [Concomitant]
     Route: 048
  3. DICLOFENAC [Concomitant]
     Dosage: UNKNOWN
  4. ACETAMINOPHEN [Concomitant]
     Route: 048
  5. ALENDRONIC ACID [Concomitant]
     Dosage: UNKNOWN
     Route: 048
  6. CITALOPRAM HYDROBROMIDE [Concomitant]
     Route: 048

REACTIONS (4)
  - AMNESIA [None]
  - CONDITION AGGRAVATED [None]
  - HYPOAESTHESIA [None]
  - PARAESTHESIA [None]
